FAERS Safety Report 8516711-2 (Version None)
Quarter: 2012Q2

REPORT INFORMATION
  Report Type: 
  Country: None (occurrence: None)
  Receive Date: 20120406
  Receipt Date: 20101214
  Transmission Date: 20120825
  Serious: Yes (Other)
  Sender: FDA-Public Use
  Company Number: PHHY2010US85188

PATIENT

DRUGS (1)
  1. TASIGNA [Suspect]
     Dosage: 300 MG, BID, ORAL
     Route: 048

REACTIONS (3)
  - BRADYCARDIA [None]
  - LIVER FUNCTION TEST ABNORMAL [None]
  - BLOOD BILIRUBIN INCREASED [None]
